FAERS Safety Report 8549476-9 (Version None)
Quarter: 2012Q3

REPORT INFORMATION
  Report Type: 
  Country: None (occurrence: None)
  Receive Date: 20120730
  Receipt Date: 20120720
  Transmission Date: 20120928
  Serious: Yes (Death, Other)
  Sender: FDA-Public Use
  Company Number: JP-ROCHE-1091764

PATIENT
  Age: 82 Year

DRUGS (3)
  1. HERCEPTIN [Suspect]
     Indication: GASTRIC CANCER RECURRENT
     Dosage: DOSAGE IS UNCERTAIN.
     Route: 041
  2. CISPLATIN [Concomitant]
     Indication: GASTRIC CANCER RECURRENT
     Dosage: DOSAGE IS UNCERTAIN.
     Route: 041
  3. XELODA [Suspect]
     Indication: GASTRIC CANCER RECURRENT
     Dosage: DOSAGE IS UNCERTAIN.
     Route: 048

REACTIONS (4)
  - STOMATITIS [None]
  - RENAL FAILURE ACUTE [None]
  - NEUTROPHIL COUNT DECREASED [None]
  - RASH [None]
